FAERS Safety Report 6839704-X (Version None)
Quarter: 2010Q2

REPORT INFORMATION
  Report Type: 
  Country: None (occurrence: None)
  Receive Date: 20100629
  Receipt Date: 20100301
  Transmission Date: 20101027
  Serious: No
  Sender: FDA-Public Use
  Company Number: US-WYE-H13093710

PATIENT
  Age: 48 Year
  Sex: Female
  Weight: 68.1 kg

DRUGS (6)
  1. PRISTIQ [Suspect]
     Indication: DEPRESSION
     Dosage: 50 MG 1X PER 1 DAY, ORAL
     Route: 048
     Dates: start: 20090101
  2. PREMPRO [Concomitant]
  3. FLONASE [Concomitant]
  4. CAPADEX (DEXTROPROPOXYPHENE HYDROCHLORIDE/PARACETAMOL) [Concomitant]
  5. SYNTHROID [Concomitant]
  6. ZYRTEC [Concomitant]

REACTIONS (2)
  - DIARRHOEA [None]
  - REACTION TO DRUG EXCIPIENTS [None]
